FAERS Safety Report 21004384 (Version 1)
Quarter: 2022Q2

REPORT INFORMATION
  Report Type: Spontaneous
  Country: US (occurrence: US)
  Receive Date: 20220624
  Receipt Date: 20220624
  Transmission Date: 20220720
  Serious: Yes (Other)
  Sender: FDA-Public Use
  Company Number: US-GLENMARK PHARMACEUTICALS-2022GMK073087

PATIENT
  Age: 34 Year
  Sex: Male

DRUGS (9)
  1. GABAPENTIN [Suspect]
     Active Substance: GABAPENTIN
     Indication: Withdrawal syndrome
     Dosage: 100 MILLIGRAM, BID
     Route: 065
  2. BACLOFEN [Suspect]
     Active Substance: BACLOFEN
     Indication: Withdrawal syndrome
     Dosage: 5 MILLIGRAM, TID
     Route: 065
  3. BACLOFEN [Suspect]
     Active Substance: BACLOFEN
     Dosage: 10 MILLIGRAM, OD
     Route: 065
  4. BACLOFEN [Suspect]
     Active Substance: BACLOFEN
     Dosage: 10 MILLIGRAM, TID WAS STARTED ON HOSPITAL DAY 4
     Route: 065
  5. BACLOFEN [Suspect]
     Active Substance: BACLOFEN
     Dosage: 20 MILLIGRAM, TID WAS STARTED ON HOSPITAL DAY 4
     Route: 065
  6. 4-AMINO-3-PHENYLBUTYRIC ACID [Concomitant]
     Active Substance: 4-AMINO-3-PHENYLBUTYRIC ACID
     Indication: Drug use disorder
     Dosage: 1 GRAM, QD (MIXED WITH WATER (RECOMMENDED DAILY AMOUNT ON PACKAGING)
     Route: 065
  7. 4-AMINO-3-PHENYLBUTYRIC ACID [Concomitant]
     Active Substance: 4-AMINO-3-PHENYLBUTYRIC ACID
     Dosage: UNK UNK, QD (GRADUALLY INCREASED HIS USE TO 4 TO 5G PER DAY)
     Route: 065
  8. 4-AMINO-3-PHENYLBUTYRIC ACID [Concomitant]
     Active Substance: 4-AMINO-3-PHENYLBUTYRIC ACID
     Dosage: UNK, QD (6 MONTHS AFTER INITIAL USE AND NOW USING 8 TO 12G PER DAY)
     Route: 065
  9. 4-AMINO-3-PHENYLBUTYRIC ACID [Concomitant]
     Active Substance: 4-AMINO-3-PHENYLBUTYRIC ACID
     Dosage: UNK, QD (FOLLOWING 2 YEARS TO APPROXIMATELY 28.5 G PER DAY)
     Route: 065

REACTIONS (2)
  - Drug dependence [Recovering/Resolving]
  - Drug effective for unapproved indication [Unknown]
